FAERS Safety Report 16009992 (Version 1)
Quarter: 2019Q1

REPORT INFORMATION
  Report Type: Report from Study
  Country: CA (occurrence: CA)
  Receive Date: 20190225
  Receipt Date: 20190225
  Transmission Date: 20190418
  Serious: Yes (Death, Other)
  Sender: FDA-Public Use
  Company Number: PHHY2018CA189857

PATIENT
  Age: 70 Year
  Sex: Male

DRUGS (1)
  1. SANDOSTATIN LAR DEPOT [Suspect]
     Active Substance: OCTREOTIDE ACETATE
     Indication: CARCINOID TUMOUR
     Dosage: 30 MG, QMO (EVERY 4 WEEKS)
     Route: 030
     Dates: start: 20181130

REACTIONS (7)
  - Hepatic cancer [Unknown]
  - Death [Fatal]
  - Arthralgia [Recovered/Resolved]
  - Prostatomegaly [Unknown]
  - Memory impairment [Unknown]
  - Pain [Unknown]
  - Intussusception [Unknown]

NARRATIVE: CASE EVENT DATE: 20181130
